FAERS Safety Report 6486364-6 (Version None)
Quarter: 2009Q4

REPORT INFORMATION
  Report Type: 
  Country: None (occurrence: None)
  Receive Date: 20091209
  Receipt Date: 20091208
  Transmission Date: 20100525
  Serious: Yes (Hospitalization, Other)
  Sender: FDA-Public Use
  Company Number: US-ASTRAZENECA-2006UW24276

PATIENT
  Age: 14317 Day
  Sex: Female
  Weight: 98.6 kg

DRUGS (33)
  1. SEROQUEL [Suspect]
     Indication: HALLUCINATION
     Dosage: 25 MG TO 100 MG
     Route: 048
     Dates: start: 20041117, end: 20051014
  2. SEROQUEL [Suspect]
     Indication: DEPRESSION
     Dosage: 25 MG TO 100 MG
     Route: 048
     Dates: start: 20041117, end: 20051014
  3. SEROQUEL [Suspect]
     Indication: ANXIETY
     Dosage: 25 MG TO 100 MG
     Route: 048
     Dates: start: 20041117, end: 20051014
  4. SEROQUEL [Suspect]
     Route: 048
     Dates: start: 20050201
  5. SEROQUEL [Suspect]
     Route: 048
     Dates: start: 20050201
  6. SEROQUEL [Suspect]
     Route: 048
     Dates: start: 20050201
  7. SEROQUEL [Suspect]
     Route: 048
     Dates: start: 20050218
  8. SEROQUEL [Suspect]
     Route: 048
     Dates: start: 20050218
  9. SEROQUEL [Suspect]
     Route: 048
     Dates: start: 20050218
  10. ZOLOFT [Concomitant]
  11. TRAZODONE HCL [Concomitant]
  12. ABILIFY [Concomitant]
  13. XANAX [Concomitant]
  14. LANTUS [Concomitant]
  15. PROVERA [Concomitant]
  16. ALBUTEROL [Concomitant]
  17. ASPIRIN [Concomitant]
  18. ACTOS [Concomitant]
  19. PALGIC [Concomitant]
  20. LISINOPRIL [Concomitant]
  21. FUROSEMIDE [Concomitant]
  22. ADAVIR DISKUS [Concomitant]
  23. CAPTOPRIL [Concomitant]
  24. ALDACTONE [Concomitant]
  25. DEMORAL [Concomitant]
  26. OXYCODONE W/ACETAMIN [Concomitant]
     Dates: start: 20050218
  27. IBUPROFEN [Concomitant]
     Dates: start: 20050218
  28. ADVAIR DISKUS 100/50 [Concomitant]
     Dates: start: 20050218
  29. SIMETHICONE [Concomitant]
     Dates: start: 20050219
  30. BISACODYL [Concomitant]
     Dates: start: 20050219
  31. NAPROSYN [Concomitant]
     Indication: PAIN
     Dates: start: 20060322
  32. HYDROXYZINE [Concomitant]
     Dates: start: 20060322
  33. MEDROXYPROGESTERONE [Concomitant]
     Dates: start: 20050201

REACTIONS (38)
  - ABDOMINAL PAIN [None]
  - ACUTE SINUSITIS [None]
  - ANAEMIA [None]
  - ARTERIOSCLEROSIS [None]
  - BACK PAIN [None]
  - BLOOD CHOLESTEROL INCREASED [None]
  - BRONCHITIS [None]
  - CARDIAC MURMUR [None]
  - CEREBRAL ARTERIOSCLEROSIS [None]
  - CHEST PAIN [None]
  - CONJUNCTIVITIS [None]
  - COSTOCHONDRITIS [None]
  - DEHYDRATION [None]
  - DIABETES MELLITUS [None]
  - DIABETES MELLITUS INADEQUATE CONTROL [None]
  - DUODENITIS [None]
  - DYSKINESIA [None]
  - DYSPNOEA EXERTIONAL [None]
  - DYSURIA [None]
  - GASTROENTERITIS VIRAL [None]
  - GLYCOSURIA [None]
  - HAEMORRHOIDS [None]
  - HEPATIC CIRRHOSIS [None]
  - HYPERSENSITIVITY [None]
  - MENOMETRORRHAGIA [None]
  - MUSCLE SPASMS [None]
  - OEDEMA [None]
  - OEDEMA PERIPHERAL [None]
  - PAIN IN EXTREMITY [None]
  - PERIPHERAL VASCULAR DISORDER [None]
  - PHARYNGITIS [None]
  - PORTAL HYPERTENSION [None]
  - SINUS TACHYCARDIA [None]
  - THROMBOCYTOPENIA [None]
  - URINARY TRACT INFECTION [None]
  - UTERINE LEIOMYOMA [None]
  - VISION BLURRED [None]
  - WEIGHT INCREASED [None]
